FAERS Safety Report 8033284 (Version 2)
Quarter: 2013Q3

REPORT INFORMATION
  Report Type: Spontaneous
  Country: US (occurrence: US)
  Receive Date: 20110713
  Receipt Date: 20130802
  Transmission Date: 20140515
  Serious: Yes (Hospitalization)
  Sender: FDA-Public Use
  Company Number: US-GLAXOSMITHKLINE-A0936367A

PATIENT
  Age: 56 Year
  Sex: Female
  Weight: 89.8 kg

DRUGS (12)
  1. AVANDIA [Suspect]
     Indication: DIABETES MELLITUS
     Route: 048
     Dates: end: 200409
  2. AVANDAMET [Suspect]
     Indication: DIABETES MELLITUS
     Route: 048
     Dates: start: 200409
  3. LASIX [Concomitant]
  4. CAPTOPRIL [Concomitant]
  5. LIPITOR [Concomitant]
  6. GLUCOTROL XL [Concomitant]
  7. DEPAKOTE ER [Concomitant]
  8. PROZAC [Concomitant]
  9. CLONIDINE [Concomitant]
  10. ASPIRIN [Concomitant]
  11. PLAVIX [Concomitant]
  12. RANITIDINE [Concomitant]

REACTIONS (2)
  - Myocardial infarction [Unknown]
  - Coronary artery disease [Unknown]
